FAERS Safety Report 12906784 (Version 2)
Quarter: 2017Q1

REPORT INFORMATION
  Report Type: Spontaneous
  Country: JP (occurrence: JP)
  Receive Date: 20161103
  Receipt Date: 20170329
  Transmission Date: 20170428
  Serious: Yes (Death, Hospitalization, Other)
  Sender: FDA-Public Use
  Company Number: JP-BRISTOL-MYERS SQUIBB COMPANY-BMS-2016-069439

PATIENT
  Age: 74 Year
  Sex: Male

DRUGS (1)
  1. OPDIVO [Suspect]
     Active Substance: NIVOLUMAB
     Indication: NON-SMALL CELL LUNG CANCER RECURRENT
     Dosage: 3 MG/KG, UNK
     Route: 041
     Dates: start: 20160804, end: 20160804

REACTIONS (4)
  - Interstitial lung disease [Fatal]
  - Pneumothorax [Fatal]
  - Pneumonia bacterial [Fatal]
  - Thoracostomy [Unknown]

NARRATIVE: CASE EVENT DATE: 20160812
